FAERS Safety Report 15067238 (Version 1)
Quarter: 2018Q2

REPORT INFORMATION
  Report Type: Spontaneous
  Country: US (occurrence: US)
  Receive Date: 20180606
  Receipt Date: 20180606
  Transmission Date: 20180711
  Serious: Yes (Other)
  Sender: FDA-Public Use
  Company Number: None

PATIENT
  Age: 39 Year
  Sex: Female
  Weight: 105.75 kg

DRUGS (1)
  1. DOTAREM [Suspect]
     Active Substance: GADOTERATE MEGLUMINE
     Indication: NUCLEAR MAGNETIC RESONANCE IMAGING ABDOMINAL
     Route: 042
     Dates: start: 20180606, end: 20180606

REACTIONS (6)
  - Vomiting [None]
  - Presyncope [None]
  - Limb discomfort [None]
  - Tooth disorder [None]
  - Dry mouth [None]
  - Blood pressure diastolic increased [None]

NARRATIVE: CASE EVENT DATE: 20180606
